FAERS Safety Report 7788586-0 (Version None)
Quarter: 2011Q3

REPORT INFORMATION
  Report Type: 
  Country: None (occurrence: None)
  Receive Date: 20110928
  Receipt Date: 20110922
  Transmission Date: 20111222
  Serious: Yes (Hospitalization)
  Sender: FDA-Public Use
  Company Number: 2011SP045111

PATIENT
  Age: 12 Year
  Sex: Male

DRUGS (2)
  1. DEXAMETHASONE [Suspect]
     Indication: PRODUCT USED FOR UNKNOWN INDICATION
     Dosage: 2.5 MG;QD;PO
     Route: 048
  2. LISINOPRIL [Concomitant]

REACTIONS (3)
  - SINUS TACHYCARDIA [None]
  - HYPERTENSION [None]
  - DEVICE RELATED INFECTION [None]
